APPROVED DRUG PRODUCT: SPECTAMINE
Active Ingredient: IOFETAMINE HYDROCHLORIDE I-123
Strength: 1mCi/ML
Dosage Form/Route: INJECTABLE;INJECTION
Application: N019432 | Product #001
Applicant: IMP INC
Approved: Dec 24, 1987 | RLD: No | RS: No | Type: DISCN